FAERS Safety Report 10917380 (Version 1)
Quarter: 2015Q1

REPORT INFORMATION
  Report Type: Spontaneous
  Country: US (occurrence: None)
  Receive Date: 20150312
  Receipt Date: 20150312
  Transmission Date: 20150721
  Serious: No
  Sender: FDA-Public Use
  Company Number: None

PATIENT
  Age: 21 Year
  Sex: Female
  Weight: 52.16 kg

DRUGS (1)
  1. FLUCONAZOLE. [Suspect]
     Active Substance: FLUCONAZOLE
     Indication: VULVOVAGINAL MYCOTIC INFECTION
     Dosage: 2 PILLS
     Route: 048
     Dates: start: 20150226, end: 20150227

REACTIONS (10)
  - Dysgeusia [None]
  - Nausea [None]
  - Vomiting [None]
  - Diarrhoea [None]
  - Blood electrolytes abnormal [None]
  - Asthenia [None]
  - Abdominal pain [None]
  - Decreased appetite [None]
  - Eructation [None]
  - Dizziness [None]

NARRATIVE: CASE EVENT DATE: 20150301
